FAERS Safety Report 8890816 (Version 1)
Quarter: 2012Q4

REPORT INFORMATION
  Report Type: 
  Country: US (occurrence: US)
  Receive Date: 20121107
  Receipt Date: 20121107
  Transmission Date: 20130627
  Serious: No
  Sender: FDA-Public Use
  Company Number: US-ASTRAZENECA-2012SE81653

PATIENT
  Age: 48 Year
  Sex: Female

DRUGS (7)
  1. SYMBICORT PMDI [Suspect]
     Dosage: 160-4.5 MCG, 1 PUFFS TWO TIMES A DAY
     Route: 055
     Dates: start: 20120409
  2. SYMBICORT PMDI [Suspect]
     Dosage: 160-4.5 MCG, 1 PUFFS TWO TIMES A DAY
     Route: 055
     Dates: start: 20121009
  3. LISINOPRIL [Suspect]
     Route: 048
     Dates: start: 20121008
  4. ALBUTEROL SULFATE [Concomitant]
     Indication: DYSPNOEA
     Dates: start: 20121008
  5. IBUPROFEN [Concomitant]
     Indication: PAIN IN EXTREMITY
     Route: 048
  6. ULTRAM [Concomitant]
     Indication: PAIN IN EXTREMITY
     Route: 048
  7. CALCIUM/VITAMIN D [Concomitant]
     Dosage: 600-400 MG UNIT , 2 TABLETS DAILY
     Route: 048
     Dates: start: 20111207

REACTIONS (9)
  - Chronic obstructive pulmonary disease [Unknown]
  - Essential hypertension [Unknown]
  - Vulvovaginitis trichomonal [Unknown]
  - Vaginitis bacterial [Unknown]
  - Overweight [Unknown]
  - Tobacco abuse [Unknown]
  - Bronchitis [Unknown]
  - Acute sinusitis [Unknown]
  - Arthralgia [Unknown]
